FAERS Safety Report 14336641 (Version 1)
Quarter: 2017Q4

REPORT INFORMATION
  Report Type: Spontaneous
  Country: AT (occurrence: AT)
  Receive Date: 20171229
  Receipt Date: 20171229
  Transmission Date: 20180321
  Serious: Yes (Other)
  Sender: FDA-Public Use
  Company Number: PHHY2017AT192080

PATIENT
  Age: 33 Year
  Sex: Female

DRUGS (1)
  1. ARGATROBAN. [Suspect]
     Active Substance: ARGATROBAN
     Indication: PLATELET COUNT DECREASED
     Dosage: 0.753 UG/KG/MIN (.033-TO-0.753 UG/KG/MIN), UNK
     Route: 065

REACTIONS (1)
  - Thrombocytosis [Unknown]
